FAERS Safety Report 5296394-8 (Version None)
Quarter: 2007Q2

REPORT INFORMATION
  Report Type: 
  Country: None (occurrence: None)
  Receive Date: 20070413
  Receipt Date: 20070329
  Transmission Date: 20071010
  Serious: Yes (Hospitalization)
  Sender: FDA-Public Use
  Company Number: IL-ROCHE-490665

PATIENT
  Sex: Male

DRUGS (1)
  1. ROACCUTANE [Suspect]
     Indication: ACNE
     Dosage: DOSING FREQUENCY REPORTED AS EVERY OTHER DAY.
     Route: 065
     Dates: start: 20061115, end: 20070315

REACTIONS (1)
  - ERECTILE DYSFUNCTION [None]
